FAERS Safety Report 4356763-7 (Version None)
Quarter: 2004Q2

REPORT INFORMATION
  Report Type: 
  Country: None (occurrence: None)
  Receive Date: 20040507
  Receipt Date: 20040422
  Transmission Date: 20050107
  Serious: Yes (Hospitalization, Other)
  Sender: FDA-Public Use
  Company Number: JP_031002075

PATIENT
  Age: 62 Year
  Sex: Male
  Weight: 59 kg

DRUGS (12)
  1. ZYPREXA [Suspect]
     Indication: SCHIZOPHRENIA, RESIDUAL TYPE
     Dosage: 5 MG/DAY
     Route: 048
     Dates: start: 20020618, end: 20021002
  2. RISPERDAL [Concomitant]
  3. LORAZEPAM [Concomitant]
  4. AKINETON [Concomitant]
  5. SELBEX    (TEPRENONE) [Concomitant]
  6. VITAMIN A [Concomitant]
  7. DEPAS (ETIZOLAM) [Concomitant]
  8. ROHYPNOL   (FLUNITRAZEPAM) [Concomitant]
  9. PARLODEL [Concomitant]
  10. EBRETID (DISTIGMINE BROMIDE) [Concomitant]
  11. MELLERIL (THIORIDAZINE HYDROCHLORIDE) [Concomitant]
  12. CLONAZEPAM [Concomitant]

REACTIONS (10)
  - ANXIETY [None]
  - BLOOD CHLORIDE INCREASED [None]
  - BLOOD CREATINE PHOSPHOKINASE INCREASED [None]
  - DEHYDRATION [None]
  - FLUID INTAKE REDUCED [None]
  - HYPERNATRAEMIA [None]
  - MARKEDLY REDUCED DIETARY INTAKE [None]
  - PYREXIA [None]
  - RHABDOMYOLYSIS [None]
  - WAXY FLEXIBILITY [None]
